FAERS Safety Report 15846262 (Version 4)
Quarter: 2019Q1

REPORT INFORMATION
  Report Type: Spontaneous
  Country: FR (occurrence: FR)
  Receive Date: 20190120
  Receipt Date: 20190312
  Transmission Date: 20190417
  Serious: Yes (Other)
  Sender: FDA-Public Use
  Company Number: PHHY2019FR005793

PATIENT
  Age: 78 Year
  Sex: Female

DRUGS (4)
  1. AZOPT [Concomitant]
     Active Substance: BRINZOLAMIDE
     Indication: OPEN ANGLE GLAUCOMA
     Dosage: UNK UNK, QD
     Route: 065
     Dates: start: 201509
  2. BRIMONIDINE [Suspect]
     Active Substance: BRIMONIDINE TARTRATE
     Indication: OPEN ANGLE GLAUCOMA
     Dosage: UNK UNK, BID
     Route: 047
     Dates: start: 201509
  3. DORZOLAMIDE [Concomitant]
     Active Substance: DORZOLAMIDE
     Indication: OPEN ANGLE GLAUCOMA
     Route: 065
  4. XALATAN [Concomitant]
     Active Substance: LATANOPROST
     Indication: OPEN ANGLE GLAUCOMA
     Dosage: UNK UNK, QD
     Route: 065
     Dates: start: 201509

REACTIONS (14)
  - Corneal neovascularisation [Recovered/Resolved]
  - Eye pain [Recovered/Resolved]
  - Intraocular pressure increased [Recovered/Resolved]
  - Erythema of eyelid [Recovered/Resolved]
  - Corneal deposits [Recovered/Resolved]
  - Ocular surface disease [Recovered/Resolved]
  - Conjunctival oedema [Recovered/Resolved]
  - Eyelid oedema [Recovered/Resolved]
  - Drug hypersensitivity [Recovered/Resolved]
  - Keratitis [Recovered/Resolved]
  - Concomitant disease aggravated [Unknown]
  - Hyperaemia [Recovered/Resolved]
  - Foreign body sensation in eyes [Recovered/Resolved]
  - Toxicity to various agents [Unknown]

NARRATIVE: CASE EVENT DATE: 201509
